FAERS Safety Report 4515579-9 (Version None)
Quarter: 2004Q4

REPORT INFORMATION
  Report Type: 
  Country: None (occurrence: None)
  Receive Date: 20041126
  Receipt Date: 20041110
  Transmission Date: 20050328
  Serious: Yes (Other)
  Sender: FDA-Public Use
  Company Number: 2004091466

PATIENT
  Age: 80 Year
  Sex: Female
  Weight: 86.1834 kg

DRUGS (5)
  1. CELEBREX [Suspect]
     Indication: ARTHRALGIA
     Dosage: 200 MG (200 MG, OCCASIONALLY), ORAL/ABOUT 3 YEARS AGO
     Route: 048
  2. ATENOLOL [Concomitant]
  3. ESTROGEN NOS (ESTROGEN NOS) [Concomitant]
  4. PROPACET 100 [Concomitant]
  5. ANTIHYPERTENSIVES (ANTIHYPERTENSIVES) [Concomitant]

REACTIONS (3)
  - ARTHRITIS [None]
  - BLOOD TEST ABNORMAL [None]
  - HIP ARTHROPLASTY [None]
